FAERS Safety Report 5620096-9 (Version None)
Quarter: 2008Q1

REPORT INFORMATION
  Report Type: 
  Country: None (occurrence: None)
  Receive Date: 20080208
  Receipt Date: 20080131
  Transmission Date: 20080703
  Serious: Yes (Hospitalization)
  Sender: FDA-Public Use
  Company Number: JP-MERCK-0801USA05151

PATIENT
  Age: 32 Year
  Sex: Male
  Weight: 76 kg

DRUGS (7)
  1. PROPECIA [Suspect]
     Indication: ANDROGENETIC ALOPECIA
     Route: 048
     Dates: start: 20070101, end: 20080101
  2. LOXONIN [Concomitant]
     Indication: HEADACHE
     Route: 065
  3. MEIACT [Concomitant]
     Indication: UPPER RESPIRATORY TRACT INFLAMMATION
     Route: 048
     Dates: start: 20080114, end: 20080117
  4. ASVERIN [Concomitant]
     Indication: UPPER RESPIRATORY TRACT INFLAMMATION
     Route: 048
     Dates: start: 20080114, end: 20080117
  5. AMBROXOL HYDROCHLORIDE [Concomitant]
     Indication: UPPER RESPIRATORY TRACT INFLAMMATION
     Route: 048
     Dates: start: 20080114, end: 20080117
  6. MIYA BM [Concomitant]
     Indication: UPPER RESPIRATORY TRACT INFLAMMATION
     Route: 048
     Dates: start: 20080114, end: 20080117
  7. ALUMINUM HYDROXIDE AND DIPOTASSIUM GLYCYRRHIZATE AND GLYCINE AND LEVOG [Concomitant]
     Indication: UPPER RESPIRATORY TRACT INFLAMMATION
     Route: 048
     Dates: start: 20080114, end: 20080117

REACTIONS (5)
  - HEADACHE [None]
  - HYDRONEPHROSIS [None]
  - PYREXIA [None]
  - UPPER RESPIRATORY TRACT INFLAMMATION [None]
  - URINARY RETENTION [None]
